FAERS Safety Report 19113560 (Version 1)
Quarter: 2021Q2

REPORT INFORMATION
  Report Type: Spontaneous
  Country: US (occurrence: US)
  Receive Date: 20210408
  Receipt Date: 20210408
  Transmission Date: 20210717
  Serious: No
  Sender: FDA-Public Use
  Company Number: US-TEVA-2021-US-1892785

PATIENT
  Sex: Male

DRUGS (24)
  1. FLOVENT HFA INHALATION AEROSOL 110 MCG/ACT [Concomitant]
     Route: 055
  2. METFORMIN HCL 500 MG [Concomitant]
     Active Substance: METFORMIN HYDROCHLORIDE
     Route: 048
  3. E400  400 UNIT [Concomitant]
     Route: 048
  4. VENLAFAXINE HCL ER  TABLET EXTENDED RELEASE 24 HOURS 225 MG [Concomitant]
     Route: 048
  5. POTASSIUM CITRATE. [Concomitant]
     Active Substance: POTASSIUM CITRATE
     Route: 048
  6. XOPENEX HFA INHALATION AEROSOL 45 MCG/ACT [Concomitant]
     Route: 055
  7. PEPCID AC MAXIMUM STRENGHT 20 MG [Concomitant]
     Route: 048
  8. PREDNISONE 10 MG [Concomitant]
     Active Substance: PREDNISONE
     Route: 048
  9. PRILOSEC 40 MG DELAYED CAPSULES RELEASE [Concomitant]
     Route: 048
  10. SINGULAIR [Concomitant]
     Active Substance: MONTELUKAST SODIUM
     Route: 048
  11. TRIAMCINOLONE ACETONIDE EXTERNAL CREAM 0.025% [Concomitant]
  12. OMEGA 3 1200 MG [Concomitant]
     Route: 048
  13. D3 HIGH POTENCY 125 MCG (5000UT) [Concomitant]
     Route: 048
  14. MAGNESIUM 400 MG [Concomitant]
     Route: 048
  15. EXCEDRIN EXTRA STRENGHT 250?250?65 MG [Concomitant]
  16. AUSTEDO [Suspect]
     Active Substance: DEUTETRABENAZINE
     Indication: TARDIVE DYSKINESIA
     Dosage: 12 MILLIGRAM DAILY;
     Route: 065
  17. ZANAFLEX 2 MG [Concomitant]
     Route: 048
  18. CLONIDINE HCL 0.1 MG [Concomitant]
     Active Substance: CLONIDINE HYDROCHLORIDE
     Route: 048
  19. CHLORTHALIDONE 25MG [Concomitant]
     Active Substance: CHLORTHALIDONE
     Route: 048
  20. FLONASE ALLERGY RELIEF NASAL SUSPENSION 50 MCG/ACT [Concomitant]
  21. LATUDA [Concomitant]
     Active Substance: LURASIDONE HYDROCHLORIDE
     Route: 048
  22. MAXALT 10 MG [Concomitant]
     Route: 048
  23. SALINE NASAL SPRAY NASAL SOLUTION 0.65% [Concomitant]
  24. LIPITOR 80 MG [Concomitant]
     Route: 048

REACTIONS (4)
  - Akathisia [Not Recovered/Not Resolved]
  - Anxiety [Unknown]
  - Dyskinesia [Not Recovered/Not Resolved]
  - Insomnia [Unknown]
